FAERS Safety Report 9884240 (Version 1)
Quarter: 2014Q1

REPORT INFORMATION
  Report Type: Spontaneous
  Country: US (occurrence: US)
  Receive Date: 20140210
  Receipt Date: 20140210
  Transmission Date: 20141002
  Serious: No
  Sender: FDA-Public Use
  Company Number: US-ALLERGAN-1315646US

PATIENT
  Age: 51 Year
  Sex: Female

DRUGS (1)
  1. BOTOX [Suspect]
     Indication: HEADACHE
     Dosage: 200 UNITS, SINGLE
     Route: 030
     Dates: start: 201301, end: 201301

REACTIONS (3)
  - Off label use [Unknown]
  - Headache [Unknown]
  - Headache [Unknown]
